FAERS Safety Report 6436370-2 (Version None)
Quarter: 2009Q4

REPORT INFORMATION
  Report Type: 
  Country: None (occurrence: None)
  Receive Date: 20091111
  Receipt Date: 20091029
  Transmission Date: 20100525
  Serious: Yes (Hospitalization, Other)
  Sender: FDA-Public Use
  Company Number: PHEH2009US12427

PATIENT
  Sex: Male
  Weight: 77.098 kg

DRUGS (17)
  1. GLEEVEC [Suspect]
     Indication: GASTROINTESTINAL STROMAL TUMOUR
     Dosage: 400 MG, QD
     Dates: start: 20090618
  2. AMLODIPINE [Concomitant]
     Dosage: 10 MG, DAILY
     Route: 048
  3. ATENOLOL [Concomitant]
     Dosage: 50 MG, DAILY
     Route: 048
  4. METFORMIN [Concomitant]
     Dosage: 400 MG, BID
     Route: 048
  5. AVANDIA [Concomitant]
     Dosage: 4 MG, BID
     Route: 048
  6. PROTONIX [Concomitant]
     Dosage: 40 MG, DAILY
     Route: 048
  7. REGLAN [Concomitant]
     Dosage: 10 MG, QID BEFORE MEALS
     Route: 048
  8. LIPITOR [Concomitant]
     Dosage: 20 MG, DAILY
     Route: 048
  9. IRON SUPPLEMENTS [Concomitant]
     Dosage: 150 MG, BID
  10. TRICOR [Concomitant]
     Dosage: 145 MG, QD
  11. NORVASC [Concomitant]
     Dosage: 10 MG, QD
  12. ALTACE [Concomitant]
     Dosage: 10 MG, QD
  13. AVANDAMET [Concomitant]
     Dosage: 500MG-2MG TWICE DAILY
  14. GLIPIZIDE [Concomitant]
     Dosage: 10 MG, QD
  15. ZANTAC [Concomitant]
     Dosage: 150 MG, BID
  16. ACIPHEX [Concomitant]
     Dosage: 20 MG, QD
  17. TERAZOSIN HCL [Concomitant]
     Dosage: 5 MG, QHS

REACTIONS (20)
  - ANAEMIA [None]
  - BLOOD CREATININE INCREASED [None]
  - BLOOD URIC ACID INCREASED [None]
  - DECREASED APPETITE [None]
  - DYSGEUSIA [None]
  - EOSINOPHILIA [None]
  - EOSINOPHILS URINE PRESENT [None]
  - ERYTHEMA [None]
  - FACE OEDEMA [None]
  - FAECES DISCOLOURED [None]
  - FATIGUE [None]
  - NAUSEA [None]
  - OEDEMA [None]
  - OEDEMA PERIPHERAL [None]
  - PRURITUS [None]
  - RASH [None]
  - RENAL FAILURE ACUTE [None]
  - SKIN EXFOLIATION [None]
  - TUBULOINTERSTITIAL NEPHRITIS [None]
  - WEIGHT INCREASED [None]
